FAERS Safety Report 9563414 (Version 1)
Quarter: 2013Q1

REPORT INFORMATION
  Report Type: Spontaneous
  Country: US (occurrence: None)
  Receive Date: 20121218
  Receipt Date: 20121218
  Transmission Date: 20140127
  Serious: Yes (Other)
  Sender: FDA-Public Use
  Company Number: PHEH2012US011414

PATIENT
  Age: 39 Year
  Sex: 0

DRUGS (1)
  1. ZOMETA [Suspect]

REACTIONS (1)
  - Disease progression [None]
